FAERS Safety Report 6675209-7 (Version None)
Quarter: 2010Q2

REPORT INFORMATION
  Report Type: 
  Country: None (occurrence: None)
  Receive Date: 20100409
  Receipt Date: 20100331
  Transmission Date: 20101027
  Serious: Yes (Other)
  Sender: FDA-Public Use
  Company Number: BR-PFIZER INC-2010039478

PATIENT
  Age: 62 Year
  Sex: Male
  Weight: 96.145 kg

DRUGS (7)
  1. LIPITOR [Suspect]
     Indication: BLOOD CHOLESTEROL
     Dosage: 10 MG, DAILY
     Route: 048
  2. LIPITOR [Suspect]
     Indication: BLOOD TRIGLYCERIDES
  3. PLAVIX [Concomitant]
     Dosage: 75 MG, UNK
     Dates: start: 20091209
  4. LOSARTAN POTASSIUM [Concomitant]
     Indication: HYPERTENSION
     Dosage: UNK
  5. AAS [Concomitant]
     Dosage: 100 MG, UNK
  6. AMLODIPINE [Concomitant]
     Indication: HYPERTENSION
     Dosage: 10 MG, UNK
  7. METFORMIN HYDROCHLORIDE [Concomitant]
     Indication: DIABETES MELLITUS
     Dosage: UNK
     Dates: start: 20080101

REACTIONS (2)
  - ANGIOPLASTY [None]
  - STENT PLACEMENT [None]
